FAERS Safety Report 18506753 (Version 1)
Quarter: 2020Q4

REPORT INFORMATION
  Report Type: Spontaneous
  Country: JP (occurrence: JP)
  Receive Date: 20201116
  Receipt Date: 20201116
  Transmission Date: 20210114
  Serious: Yes (Other)
  Sender: FDA-Public Use
  Company Number: JP-FERRINGPH-2020FE07982

PATIENT
  Age: 35 Year
  Sex: Female

DRUGS (2)
  1. OXYTOCIN. [Concomitant]
     Active Substance: OXYTOCIN
     Route: 065
  2. PROPESS [Suspect]
     Active Substance: DINOPROSTONE
     Indication: INDUCTION OF CERVIX RIPENING
     Dosage: 10 MG, ONCE/SINGLE
     Route: 067

REACTIONS (2)
  - Blood pressure increased [Unknown]
  - Uterine contractions abnormal [Unknown]
